FAERS Safety Report 4500740-X (Version None)
Quarter: 2004Q4

REPORT INFORMATION
  Report Type: 
  Country: None (occurrence: None)
  Receive Date: 20041109
  Receipt Date: 20041027
  Transmission Date: 20050328
  Serious: Yes (Life-Threatening, Hospitalization)
  Sender: FDA-Public Use
  Company Number: 04H-163-0279382-00

PATIENT
  Age: 85 Year
  Sex: Female

DRUGS (7)
  1. MARCAINE [Suspect]
     Indication: ANAESTHESIA
     Dosage: 1.2 CC, INTRASPINAL
     Route: 024
     Dates: start: 20040710
  2. MIDAZOLAM [Concomitant]
  3. EPHEDRINE SUL CAP [Concomitant]
  4. DIPHENHYDRAMINE HYDROCHLORIDE [Concomitant]
  5. MECOBALAMIN [Concomitant]
  6. OXYGEN [Concomitant]
  7. HEXTEND [Concomitant]

REACTIONS (1)
  - MYOCARDIAL INFARCTION [None]
